FAERS Safety Report 5763948-1 (Version None)
Quarter: 2008Q2

REPORT INFORMATION
  Report Type: 
  Country: None (occurrence: None)
  Receive Date: 20080606
  Receipt Date: 20080606
  Transmission Date: 20081010
  Serious: Yes (Death, Hospitalization)
  Sender: FDA-Public Use
  Company Number: None

PATIENT
  Age: 20 Year
  Sex: Male
  Weight: 77.1115 kg

DRUGS (2)
  1. REMICADE [Suspect]
     Indication: CROHN'S DISEASE
     Dosage: 10 MG PER KILO OF BODY WEIGH EVERY 6-7 WEEKS IV DRIP
     Route: 041
     Dates: start: 20051001, end: 20071120
  2. MERCAPTOPURINE [Suspect]
     Dosage: 50-75 MG DAILY PO
     Route: 048
     Dates: start: 20050201, end: 20071130

REACTIONS (1)
  - HEPATOSPLENIC T-CELL LYMPHOMA [None]
